FAERS Safety Report 7671560-2 (Version None)
Quarter: 2011Q3

REPORT INFORMATION
  Report Type: 
  Country: None (occurrence: None)
  Receive Date: 20110803
  Receipt Date: 20110713
  Transmission Date: 20111222
  Serious: Yes (Hospitalization)
  Sender: FDA-Public Use
  Company Number: 2011PROUSA00451

PATIENT
  Age: 79 Year
  Sex: Male
  Weight: 123.4 kg

DRUGS (13)
  1. TERAZOSIN HCL [Concomitant]
  2. BICALUTAMIDE [Concomitant]
  3. PROVENGE [Suspect]
     Indication: PROSTATE CANCER METASTATIC
     Dosage: 250 ML, SINGLE, INTRAVENOUS
     Route: 042
     Dates: start: 20110418, end: 20110418
  4. WARFARIN SODIUM [Concomitant]
  5. METOPROLOL TARTRATE [Concomitant]
  6. PROVENGE [Suspect]
     Dosage: 250 ML, SINGLE, INTRAVENOUS
     Route: 042
     Dates: start: 20110429, end: 20110429
  7. VESICARE [Concomitant]
  8. TRAVATAN [Concomitant]
  9. BRIMONIDINE TARTRATE [Concomitant]
  10. SIMVASTATIN [Concomitant]
  11. PROVENGE [Suspect]
     Dosage: 250 ML, SINGLE, INTRAVENOUS
     Route: 042
     Dates: start: 20110513, end: 20110513
  12. VITAMIN B-12 [Concomitant]
  13. ALDACTAZIDE (HYDROCHLOROTHIZIDE, SPIRONOLACTONE) [Concomitant]

REACTIONS (11)
  - DEHYDRATION [None]
  - FATIGUE [None]
  - HYPOPHAGIA [None]
  - CONSTIPATION [None]
  - WEIGHT DECREASED [None]
  - HEART RATE INCREASED [None]
  - FLUID RETENTION [None]
  - INTESTINAL OBSTRUCTION [None]
  - RENAL FAILURE ACUTE [None]
  - CHILLS [None]
  - FLUID INTAKE REDUCED [None]
